FAERS Safety Report 18234866 (Version 1)
Quarter: 2020Q3

REPORT INFORMATION
  Report Type: Spontaneous
  Country: US (occurrence: US)
  Receive Date: 20200904
  Receipt Date: 20200904
  Transmission Date: 20201103
  Serious: No
  Sender: FDA-Public Use
  Company Number: US-FRESENIUS MEDICAL CARE RENAL THERAPIES GROUP-FMC-2009-001021

PATIENT
  Age: 50 Year
  Sex: Male
  Weight: 72 kg

DRUGS (7)
  1. CALCITRIOL. [Concomitant]
     Active Substance: CALCITRIOL
  2. VITAMIN D3 [Concomitant]
     Active Substance: CHOLECALCIFEROL
  3. RENVELA [Concomitant]
     Active Substance: SEVELAMER CARBONATE
  4. INSULIN [Concomitant]
     Active Substance: INSULIN NOS
  5. DELFLEX [Suspect]
     Active Substance: CALCIUM CHLORIDE\DEXTROSE\MAGNESIUM CHLORIDE\SODIUM CHLORIDE\SODIUM LACTATE
     Indication: END STAGE RENAL DISEASE
     Dosage: FILL VOLUME 1800 ML, 7 EXCHANGES, LAST FILL 1200 ML, REFUSES A DAYTIME EXCHANGE (PRESCRIBED), DWELL
     Route: 033
  6. WELLBUTRIN [Concomitant]
     Active Substance: BUPROPION HYDROCHLORIDE
  7. COLACE [Concomitant]
     Active Substance: DOCUSATE SODIUM

REACTIONS (4)
  - Hyperkalaemia [Unknown]
  - Treatment noncompliance [Unknown]
  - Azotaemia [Unknown]
  - Fluid overload [Unknown]
